FAERS Safety Report 4374261-1 (Version None)
Quarter: 2004Q2

REPORT INFORMATION
  Report Type: 
  Country: None (occurrence: None)
  Receive Date: 20040608
  Receipt Date: 20040608
  Transmission Date: 20050107
  Serious: Yes (Hospitalization)
  Sender: FDA-Public Use
  Company Number: None

PATIENT
  Age: 71 Year
  Sex: Male
  Weight: 88 kg

DRUGS (6)
  1. DOCETAXEL [Suspect]
     Indication: NON-SMALL CELL LUNG CANCER
     Dosage: 36MG/M2 DAYS 1, 8, 15
     Dates: start: 20040322
  2. DOCETAXEL [Suspect]
     Indication: NON-SMALL CELL LUNG CANCER
     Dosage: 36MG/M2 DAYS 1, 8, 15
     Dates: start: 20040329
  3. DOCETAXEL [Suspect]
     Indication: NON-SMALL CELL LUNG CANCER
     Dosage: 36MG/M2 DAYS 1, 8, 15
     Dates: start: 20040405
  4. DOCETAXEL [Suspect]
     Indication: NON-SMALL CELL LUNG CANCER
     Dosage: 36MG/M2 DAYS 1, 8, 15
     Dates: start: 20040417
  5. DOCETAXEL [Suspect]
     Indication: NON-SMALL CELL LUNG CANCER
     Dosage: 36MG/M2 DAYS 1, 8, 15
     Dates: start: 20040426
  6. IRESSA [Suspect]
     Indication: NON-SMALL CELL LUNG CANCER
     Dosage: 250 MG PO QD
     Route: 048
     Dates: start: 20040322, end: 20040502

REACTIONS (2)
  - ATELECTASIS [None]
  - HAEMOPTYSIS [None]
